FAERS Safety Report 16327318 (Version 3)
Quarter: 2019Q2

REPORT INFORMATION
  Report Type: Spontaneous
  Country: JP (occurrence: JP)
  Receive Date: 20190517
  Receipt Date: 20190524
  Transmission Date: 20190711
  Serious: Yes (Hospitalization, Other)
  Sender: FDA-Public Use
  Company Number: JP-009507513-1905JPN007995

PATIENT
  Age: 76 Year
  Sex: Female
  Weight: 75.2 kg

DRUGS (4)
  1. GLIMEPIRIDE. [Concomitant]
     Active Substance: GLIMEPIRIDE
     Route: 048
  2. JANUVIA [Suspect]
     Active Substance: SITAGLIPTIN PHOSPHATE
     Indication: TYPE 2 DIABETES MELLITUS
     Dosage: 50 MILLIGRAM
     Route: 048
  3. METFORMIN HYDROCHLORIDE. [Concomitant]
     Active Substance: METFORMIN HYDROCHLORIDE
     Route: 048
  4. JANUVIA [Suspect]
     Active Substance: SITAGLIPTIN PHOSPHATE
     Dosage: 50 MILLIGRAM
     Route: 048

REACTIONS (8)
  - Renal impairment [Recovering/Resolving]
  - Diarrhoea [Unknown]
  - Decreased appetite [Recovering/Resolving]
  - Malaise [Recovering/Resolving]
  - Herpes zoster [Recovering/Resolving]
  - Monoplegia [Recovering/Resolving]
  - Urinary tract infection [Unknown]
  - Asthenia [Recovering/Resolving]
